FAERS Safety Report 7934555-7 (Version None)
Quarter: 2011Q4

REPORT INFORMATION
  Report Type: 
  Country: None (occurrence: None)
  Receive Date: 20111122
  Receipt Date: 20111114
  Transmission Date: 20120403
  Serious: Yes (Hospitalization)
  Sender: FDA-Public Use
  Company Number: FR-BRISTOL-MYERS SQUIBB COMPANY-16233389

PATIENT
  Age: 79 Year
  Sex: Female

DRUGS (11)
  1. CYMBALTA [Concomitant]
     Dosage: 60
  2. ACETAMINOPHEN [Concomitant]
     Dosage: 1 DF: 1 TABS 500
  3. IRBESARTAN [Suspect]
     Indication: HYPERTENSION
     Dosage: 1 DF: 1 TABS
     Route: 048
     Dates: end: 20111013
  4. FUROSEMIDE [Concomitant]
     Dosage: 1 DF: 1 TABLET IN THE MORNING 50/20
  5. TRAMADOL HYDROCHLORIDE [Suspect]
     Indication: PAIN
     Dosage: 1 DF:1CAPSULE DAILY   MONOCRIXO LP 200 MG (TRAMADOL) 1 ER
     Route: 048
     Dates: end: 20111011
  6. SPIRIVA [Concomitant]
     Dosage: 1 DF: 18 UNIT NOS IN THE MOR
  7. LANTUS [Concomitant]
     Dosage: 1 DF: 34 UNITS IN THE EVE
  8. TANAKAN [Concomitant]
     Dosage: 1 DF: 1 TABS IN THE MOR
  9. HUMALOG [Concomitant]
     Dosage: 1 DF: 36 UNITS IN THE MOR 23 U AT NOON AND 28 U IN THE EVENING
  10. PLAVIX [Concomitant]
     Dosage: 1 DF: 1 TAB AT NOON
  11. PRAVASTATIN [Concomitant]
     Dosage: 1 DF:1 TAB IN THE EVE 40

REACTIONS (5)
  - VOMITING [None]
  - RENAL FAILURE [None]
  - HEADACHE [None]
  - DEHYDRATION [None]
  - VERTIGO [None]
